FAERS Safety Report 9286389 (Version 2)
Quarter: 2013Q4

REPORT INFORMATION
  Report Type: Spontaneous
  Country: US (occurrence: US)
  Receive Date: 20130513
  Receipt Date: 20131230
  Transmission Date: 20140711
  Serious: Yes (Hospitalization)
  Sender: FDA-Public Use
  Company Number: US-BAYER-2013-058268

PATIENT
  Age: 21 Year
  Sex: Female
  Weight: 53.97 kg

DRUGS (4)
  1. YAZ [Suspect]
     Dosage: UNK
     Dates: start: 2010, end: 2010
  2. AZITHROMYCIN [Concomitant]
     Dosage: 250 MG, UNK
     Route: 048
     Dates: start: 20091217
  3. METRONIDAZOLE [Concomitant]
     Dosage: 500 MG, UNK
     Route: 048
     Dates: start: 20100211
  4. AMOXICILLIN W/POTASSIUM CLAVULANATE [Concomitant]
     Dosage: 875/125 MG
     Route: 048
     Dates: start: 20091221

REACTIONS (11)
  - Cerebrovascular accident [None]
  - Pain [None]
  - Injury [None]
  - Emotional distress [None]
  - Abdominal pain [None]
  - General physical health deterioration [None]
  - Anxiety [None]
  - Pain [None]
  - Eye movement disorder [None]
  - Migraine [None]
  - Swelling face [None]
